FAERS Safety Report 13043644 (Version 1)
Quarter: 2016Q4

REPORT INFORMATION
  Report Type: Spontaneous
  Country: US (occurrence: US)
  Receive Date: 20161219
  Receipt Date: 20161219
  Transmission Date: 20170207
  Serious: No
  Sender: FDA-Public Use
  Company Number: None

PATIENT
  Age: 65 Year
  Sex: Female

DRUGS (5)
  1. REPATHA [Suspect]
     Active Substance: EVOLOCUMAB
     Indication: HYPERLIPIDAEMIA
     Route: 058
     Dates: start: 20160123
  2. REPATHA [Suspect]
     Active Substance: EVOLOCUMAB
     Indication: ANGINA PECTORIS
     Route: 058
     Dates: start: 20160123
  3. OXYCODONE [Concomitant]
     Active Substance: OXYCODONE
  4. LINZESS [Concomitant]
     Active Substance: LINACLOTIDE
  5. VEXILANT [Concomitant]

REACTIONS (1)
  - Pituitary tumour [None]

NARRATIVE: CASE EVENT DATE: 20161209
